FAERS Safety Report 8974176 (Version 1)
Quarter: 2012Q4

REPORT INFORMATION
  Report Type: Spontaneous
  Country: US (occurrence: None)
  Receive Date: 20121217
  Receipt Date: 20121217
  Transmission Date: 20130627
  Serious: Yes (Other)
  Sender: FDA-Public Use
  Company Number: None

PATIENT
  Age: 31 Year
  Sex: Female
  Weight: 50.35 kg

DRUGS (5)
  1. WELLBUTRIN [Suspect]
     Indication: POST-TRAUMATIC STRESS DISORDER
     Route: 048
     Dates: start: 20121119, end: 20121204
  2. WELLBUTRIN [Suspect]
     Indication: SMOKING CESSATION
     Route: 048
     Dates: start: 20121119, end: 20121204
  3. LAMITCAL [Concomitant]
  4. SONTA [Concomitant]
  5. COLAPAH [Concomitant]

REACTIONS (6)
  - Urticaria [None]
  - Insomnia [None]
  - Skin tightness [None]
  - Decreased appetite [None]
  - Abnormal behaviour [None]
  - Dyslexia [None]
